FAERS Safety Report 6544434-8 (Version None)
Quarter: 2010Q1

REPORT INFORMATION
  Report Type: 
  Country: None (occurrence: None)
  Receive Date: 20100120
  Receipt Date: 20100120
  Transmission Date: 20100710
  Serious: Yes (Other)
  Sender: FDA-Public Use
  Company Number: None

PATIENT
  Sex: Female
  Weight: 71.6683 kg

DRUGS (1)
  1. TYLENOL (CAPLET) [Suspect]
     Indication: RHEUMATOID ARTHRITIS
     Dosage: 2 CAPLETS EVERY 8 HRS PO
     Route: 048
     Dates: start: 20070623, end: 20091228

REACTIONS (4)
  - IMPAIRED WORK ABILITY [None]
  - MALAISE [None]
  - NAUSEA [None]
  - VOMITING [None]
